FAERS Safety Report 16679148 (Version 3)
Quarter: 2020Q1

REPORT INFORMATION
  Report Type: Spontaneous
  Country: US (occurrence: US)
  Receive Date: 20190807
  Receipt Date: 20200114
  Transmission Date: 20200409
  Serious: Yes (Hospitalization)
  Sender: FDA-Public Use
  Company Number: PHEH2019US031982

PATIENT
  Sex: Female

DRUGS (3)
  1. IBUPROFEN. [Suspect]
     Active Substance: IBUPROFEN
     Indication: PRODUCT USED FOR UNKNOWN INDICATION
     Dosage: UNK
     Route: 065
  2. AMOXICILLIN AND CLAVULANATE POTASSIUM [Suspect]
     Active Substance: AMOXICILLIN\CLAVULANATE POTASSIUM
     Indication: PRODUCT USED FOR UNKNOWN INDICATION
     Dosage: 500 MG, TID
     Route: 065
  3. LEVOTHYROXINE SODIUM. [Suspect]
     Active Substance: LEVOTHYROXINE SODIUM
     Indication: PRODUCT USED FOR UNKNOWN INDICATION
     Dosage: 50 UG, UNK
     Route: 065

REACTIONS (13)
  - Cystitis [Unknown]
  - Disease recurrence [Unknown]
  - Dysphemia [Unknown]
  - Pain in extremity [Unknown]
  - Tinnitus [Unknown]
  - Neck pain [Unknown]
  - Drug hypersensitivity [Unknown]
  - Paraesthesia oral [Unknown]
  - Mouth injury [Unknown]
  - Dizziness [Unknown]
  - Tremor [Unknown]
  - Fibromyalgia [Unknown]
  - Back pain [Unknown]
